FAERS Safety Report 8250126-X (Version None)
Quarter: 2012Q1

REPORT INFORMATION
  Report Type: 
  Country: None (occurrence: None)
  Receive Date: 20120328
  Receipt Date: 20120323
  Transmission Date: 20120608
  Serious: Yes (Hospitalization)
  Sender: FDA-Public Use
  Company Number: 2012SP008752

PATIENT
  Age: 78 Year
  Sex: Female
  Weight: 50.6 kg

DRUGS (6)
  1. MAGNESIUM SULFATE [Concomitant]
  2. WHITE PETROLATUM [Concomitant]
  3. PURSENNID [Concomitant]
  4. AVAPRO [Concomitant]
  5. SEROQUEL [Concomitant]
  6. ASENAPINE (ASENAPINE /05706901/) [Suspect]
     Indication: SCHIZOPHRENIA
     Dosage: 5 MG;BID;SL
     Route: 060
     Dates: start: 20120118, end: 20120217

REACTIONS (2)
  - ELECTROCARDIOGRAM T WAVE ABNORMAL [None]
  - BLOOD CREATINE PHOSPHOKINASE INCREASED [None]
